FAERS Safety Report 9523742 (Version 2)
Quarter: 2013Q3

REPORT INFORMATION
  Report Type: Report from Study
  Country: KE (occurrence: KE)
  Receive Date: 20130914
  Receipt Date: 20130920
  Transmission Date: 20140515
  Serious: Yes (Death, Life-Threatening, Hospitalization)
  Sender: FDA-Public Use
  Company Number: KE-BRISTOL-MYERS SQUIBB COMPANY-19357953

PATIENT
  Age: 35 Year
  Sex: Male

DRUGS (11)
  1. EFAVIRENZ CAPS [Suspect]
     Route: 048
     Dates: start: 20130815, end: 20130824
  2. RALTEGRAVIR [Suspect]
     Indication: HIV INFECTION
     Dosage: TABS,LAST DATE:24AUG13
     Route: 048
     Dates: start: 20130815, end: 20130824
  3. TRUVADA [Suspect]
     Route: 065
     Dates: start: 20130815, end: 20130824
  4. MEDAZEPAM [Suspect]
     Route: 065
     Dates: start: 20130815, end: 20130822
  5. PREDNISOLONE [Suspect]
     Dosage: SUSPENSION FOR INJECTION
     Route: 065
     Dates: start: 20130806, end: 20130824
  6. SULFAMETHOXAZOLE + TRIMETHOPRIM [Suspect]
     Route: 065
     Dates: start: 20130808, end: 20130824
  7. CEFTRIAXONE SODIUM [Suspect]
     Route: 065
     Dates: start: 20130815, end: 20130824
  8. FLUCONAZOLE [Suspect]
     Route: 065
     Dates: start: 20130815, end: 20130824
  9. FLAGYL [Suspect]
     Route: 065
     Dates: start: 20130819, end: 20130824
  10. TENOFOVIR [Suspect]
     Route: 065
     Dates: start: 20130815, end: 20130824
  11. EMTRICITABINE [Concomitant]
     Dates: start: 20130815, end: 20130821

REACTIONS (11)
  - Pulmonary embolism [Fatal]
  - Immune reconstitution inflammatory syndrome [Fatal]
  - Sepsis [Fatal]
  - Pulmonary tuberculosis [Fatal]
  - Intestinal obstruction [Fatal]
  - Renal failure acute [Fatal]
  - Acute respiratory distress syndrome [Fatal]
  - Cardio-respiratory arrest [Fatal]
  - Hyperkalaemia [Fatal]
  - Alanine aminotransferase increased [Fatal]
  - Pyrexia [Not Recovered/Not Resolved]
